FAERS Safety Report 9734675 (Version 1)
Quarter: 2013Q4

REPORT INFORMATION
  Report Type: Report from Study
  Country: DE (occurrence: DE)
  Receive Date: 20131206
  Receipt Date: 20131206
  Transmission Date: 20140711
  Serious: Yes (Hospitalization)
  Sender: FDA-Public Use
  Company Number: DE-ROCHE-1313376

PATIENT
  Age: 54 Year
  Sex: Male
  Weight: 72 kg

DRUGS (6)
  1. RITUXIMAB [Suspect]
     Indication: RHEUMATOID ARTHRITIS
     Route: 065
     Dates: start: 20120926
  2. TACROLIMUS [Concomitant]
  3. METHYLPREDNISOLON [Concomitant]
  4. MYCOPHENOLATE MOFETIL [Concomitant]
     Route: 065
  5. AMLODIPIN [Concomitant]
  6. BISOPROLOL [Concomitant]

REACTIONS (1)
  - Gastritis [Recovered/Resolved]
